FAERS Safety Report 6014156-0 (Version None)
Quarter: 2008Q4

REPORT INFORMATION
  Report Type: 
  Country: None (occurrence: None)
  Receive Date: 20081219
  Receipt Date: 20080122
  Transmission Date: 20090506
  Serious: No
  Sender: FDA-Public Use
  Company Number: A0704600A

PATIENT
  Age: 74 Year
  Sex: Male

DRUGS (15)
  1. AVODART [Suspect]
     Dosage: .5MG PER DAY
     Route: 048
     Dates: start: 20071218
  2. FLOMAX [Concomitant]
  3. SYNTHROID [Concomitant]
  4. COREG [Concomitant]
  5. BENICAR [Concomitant]
  6. PROTONIX [Concomitant]
  7. ASPIRIN [Concomitant]
  8. CENTRUM SILVER [Concomitant]
  9. ASCORBIC ACID [Concomitant]
  10. CALCIUM [Concomitant]
  11. GLIPIZIDE [Concomitant]
  12. CRESTOR [Concomitant]
  13. BYETTA [Concomitant]
  14. LEVEMIR [Concomitant]
  15. CIMETIDINE [Concomitant]

REACTIONS (3)
  - ABDOMINAL PAIN LOWER [None]
  - FLATULENCE [None]
  - HYPERHIDROSIS [None]
